FAERS Safety Report 6646278-5 (Version None)
Quarter: 2010Q1

REPORT INFORMATION
  Report Type: 
  Country: None (occurrence: None)
  Receive Date: 20100323
  Receipt Date: 20100309
  Transmission Date: 20100710
  Serious: Yes (Hospitalization)
  Sender: FDA-Public Use
  Company Number: BE-CELGENEUS-013-C5013-10030842

PATIENT
  Sex: Female
  Weight: 71.9 kg

DRUGS (7)
  1. THALIDOMIDE [Suspect]
     Indication: MULTIPLE MYELOMA
     Route: 048
     Dates: start: 20100222
  2. MELPHALAN HYDROCHLORIDE [Suspect]
     Indication: MULTIPLE MYELOMA
     Route: 065
     Dates: start: 20100222, end: 20100225
  3. PREDNISONE [Suspect]
     Indication: MULTIPLE MYELOMA
     Route: 065
     Dates: start: 20100222, end: 20100225
  4. ACETYLSALICYL ACID [Concomitant]
     Indication: HYPERTENSION
     Route: 048
     Dates: start: 20100215
  5. SOTALOL HCL [Concomitant]
     Indication: HYPERTENSION
     Route: 048
     Dates: start: 20100212
  6. ALLOPURINOL [Concomitant]
     Indication: PROPHYLAXIS
     Route: 048
     Dates: start: 20100222
  7. CRANBERRY [Concomitant]
     Indication: PROPHYLAXIS
     Route: 048
     Dates: start: 20100222

REACTIONS (1)
  - DIVERTICULITIS [None]
